FAERS Safety Report 5033084-0 (Version None)
Quarter: 2006Q2

REPORT INFORMATION
  Report Type: 
  Country: None (occurrence: None)
  Receive Date: 20060622
  Receipt Date: 20060615
  Transmission Date: 20061013
  Serious: Yes (Hospitalization)
  Sender: FDA-Public Use
  Company Number: US-BRISTOL-MYERS SQUIBB COMPANY-13414461

PATIENT

DRUGS (2)
  1. ABILIFY [Suspect]
  2. TRILEPTAL [Suspect]
     Indication: AFFECTIVE DISORDER

REACTIONS (1)
  - PSYCHOTIC DISORDER [None]
